FAERS Safety Report 4440769-3 (Version None)
Quarter: 2004Q3

REPORT INFORMATION
  Report Type: 
  Country: None (occurrence: None)
  Receive Date: 20040824
  Receipt Date: 20040816
  Transmission Date: 20050211
  Serious: No
  Sender: FDA-Public Use
  Company Number: CART-10255

PATIENT
  Age: 37 Year
  Sex: Male

DRUGS (1)
  1. CARTICEL [Suspect]
     Indication: ARTHROPATHY
     Dosage: 1 NA ONCE IS
     Route: 035
     Dates: start: 20010122, end: 20010122

REACTIONS (10)
  - ARTHRALGIA [None]
  - ARTHRITIS [None]
  - ARTHROPATHY [None]
  - CHONDROMALACIA [None]
  - DISEASE PROGRESSION [None]
  - GRAFT OVERGROWTH [None]
  - JOINT CREPITATION [None]
  - JOINT LOCK [None]
  - PATELLOFEMORAL PAIN SYNDROME [None]
  - SCAR [None]
